APPROVED DRUG PRODUCT: FOSAMAX
Active Ingredient: ALENDRONATE SODIUM
Strength: EQ 35MG BASE **Federal Register determination that product was not discontinued or withdrawn for safety or effectiveness reasons**
Dosage Form/Route: TABLET;ORAL
Application: N020560 | Product #004
Applicant: ORGANON LLC A SUB OF ORGANON AND CO
Approved: Oct 20, 2000 | RLD: Yes | RS: No | Type: DISCN